FAERS Safety Report 7302045-0 (Version None)
Quarter: 2011Q1

REPORT INFORMATION
  Report Type: 
  Country: None (occurrence: None)
  Receive Date: 20110218
  Receipt Date: 20110209
  Transmission Date: 20110831
  Serious: Yes (Other)
  Sender: FDA-Public Use
  Company Number: CH-SANOFI-AVENTIS-2011SA008471

PATIENT
  Age: 51 Year
  Sex: Female
  Weight: 54 kg

DRUGS (5)
  1. ELOXATIN [Suspect]
     Indication: COLON CANCER
     Route: 042
     Dates: start: 20100526, end: 20100526
  2. ELOXATIN [Suspect]
     Route: 042
     Dates: start: 20100728, end: 20100728
  3. FLUOROURACIL [Suspect]
     Route: 042
     Dates: start: 20100728, end: 20100728
  4. FLUOROURACIL [Suspect]
     Indication: COLON CANCER
     Route: 042
     Dates: start: 20100526, end: 20100526
  5. PARACETAMOL [Suspect]
     Route: 048
     Dates: start: 20100804, end: 20100810

REACTIONS (1)
  - ACUTE HEPATIC FAILURE [None]
